FAERS Safety Report 5765452-3 (Version None)
Quarter: 2008Q2

REPORT INFORMATION
  Report Type: 
  Country: None (occurrence: None)
  Receive Date: 20080611
  Receipt Date: 20080603
  Transmission Date: 20081010
  Serious: Yes (Death)
  Sender: FDA-Public Use
  Company Number: A0727978A

PATIENT
  Age: 93 Year
  Sex: Male
  Weight: 71 kg

DRUGS (4)
  1. SERETIDE [Suspect]
     Indication: RESPIRATORY FAILURE
     Route: 055
     Dates: start: 20060101, end: 20080304
  2. CHLORTHALIDONE [Concomitant]
     Indication: DIURETIC THERAPY
  3. SERTRALINE [Concomitant]
     Indication: DEPRESSION
  4. PRAVASTATIN [Concomitant]
     Indication: HYPERCHOLESTEROLAEMIA

REACTIONS (4)
  - BRONCHOPNEUMONIA [None]
  - CONDITION AGGRAVATED [None]
  - DEMENTIA ALZHEIMER'S TYPE [None]
  - RESPIRATORY FAILURE [None]
